FAERS Safety Report 23301253 (Version 1)
Quarter: 2023Q4

REPORT INFORMATION
  Report Type: Spontaneous
  Country: CN (occurrence: CN)
  Receive Date: 20231215
  Receipt Date: 20231215
  Transmission Date: 20240109
  Serious: Yes (Other)
  Sender: FDA-Public Use
  Company Number: CN-PFIZER INC-PV202300200311

PATIENT
  Age: 61 Year
  Sex: Female
  Weight: 62 kg

DRUGS (7)
  1. FLUCONAZOLE [Interacting]
     Active Substance: FLUCONAZOLE
     Indication: Oral candidiasis
     Dosage: 400 MG, 1X/DAY
     Route: 048
     Dates: start: 20220106
  2. FLUCONAZOLE [Interacting]
     Active Substance: FLUCONAZOLE
     Dosage: 200 MG, 1X/DAY
     Route: 048
     Dates: start: 20220107
  3. FLUCONAZOLE [Interacting]
     Active Substance: FLUCONAZOLE
     Dosage: UNK
     Route: 048
     Dates: end: 20220126
  4. PRALSETINIB [Interacting]
     Active Substance: PRALSETINIB
     Indication: Non-small cell lung cancer metastatic
     Dosage: 400 MG, 1X/DAY
     Dates: start: 20211115, end: 20220109
  5. PRALSETINIB [Interacting]
     Active Substance: PRALSETINIB
     Dosage: 200 MG
     Dates: start: 20220208
  6. PRALSETINIB [Interacting]
     Active Substance: PRALSETINIB
     Dosage: 300 MG
     Dates: start: 20220218
  7. PRALSETINIB [Interacting]
     Active Substance: PRALSETINIB
     Dosage: 400 MG
     Dates: start: 20220301

REACTIONS (4)
  - Drug interaction [Unknown]
  - Neutrophil count decreased [Recovered/Resolved]
  - White blood cell count decreased [Recovered/Resolved]
  - Platelet count decreased [Recovered/Resolved]
